FAERS Safety Report 8487730-X (Version None)
Quarter: 2012Q3

REPORT INFORMATION
  Report Type: 
  Country: None (occurrence: None)
  Receive Date: 20120705
  Receipt Date: 20120626
  Transmission Date: 20120928
  Serious: Yes (Other)
  Sender: FDA-Public Use
  Company Number: JP-AMGEN-JPNCT2012029035

PATIENT
  Age: 79 Year
  Sex: Female
  Weight: 50 kg

DRUGS (11)
  1. HYALEIN [Concomitant]
     Indication: DRY EYE
     Dosage: ADEQUATE DOSE
     Route: 047
     Dates: start: 20110907
  2. SALONPAS [Concomitant]
     Indication: OSTEOPOROSIS
     Dosage: ARBITRARILY,ADEQUATE DOSE
     Route: 062
     Dates: start: 20110907
  3. NORSHIN [Concomitant]
     Indication: HEADACHE
     Dosage: AS NEEDED
     Route: 048
     Dates: start: 20110907
  4. MENTAX [Concomitant]
     Indication: ONYCHOMYCOSIS
     Dosage: ADEQUATE DOSE
     Route: 062
     Dates: start: 20110907
  5. LOXONIN [Concomitant]
     Indication: OSTEOPOROSIS
     Dosage: ARBITRARILY,ADEQUATE DOSE
     Route: 062
     Dates: start: 20110907
  6. UREPEARL [Concomitant]
     Indication: SKIN ATROPHY
     Dosage: ARBITRARILY,ADEQUATE DOSE
     Route: 062
     Dates: start: 20110202
  7. BUTENAROCK [Concomitant]
     Indication: ONYCHOMYCOSIS
     Dosage: ADEQUATE DOSE
     Route: 062
     Dates: start: 20110907
  8. DENOSUMAB [Suspect]
     Indication: OSTEOPOROSIS
     Dosage: 60 MG, Q6MO
     Route: 058
     Dates: start: 20110601, end: 20111117
  9. CALCICHEW D3 [Concomitant]
     Indication: OSTEOPOROSIS
     Dosage: UNK
     Route: 048
     Dates: start: 20090422
  10. SHOSEIRYUTO [Concomitant]
     Indication: RHINITIS
     Dosage: AS NEEDED
     Route: 048
     Dates: start: 20110907
  11. HIRUDOID [Concomitant]
     Indication: XERODERMA
     Dosage: ADEQUATE DOSE
     Route: 062
     Dates: start: 20120229

REACTIONS (1)
  - CEREBRAL INFARCTION [None]
